FAERS Safety Report 9279230 (Version 1)
Quarter: 2013Q2

REPORT INFORMATION
  Report Type: Spontaneous
  Country: US (occurrence: US)
  Receive Date: 20130508
  Receipt Date: 20130508
  Transmission Date: 20140414
  Serious: Yes (Hospitalization, Other)
  Sender: FDA-Public Use
  Company Number: CHPA2013US007731

PATIENT
  Sex: Male

DRUGS (7)
  1. PRIVATE LABEL [Suspect]
     Indication: SMOKING CESSATION THERAPY
     Dosage: 21 MG, QD
     Route: 062
  2. PRIVATE LABEL [Suspect]
     Dosage: UNK, UNK
     Route: 062
     Dates: start: 201304, end: 201304
  3. PRIVATE LABEL [Suspect]
     Dosage: 14 MG, UNK
     Route: 062
     Dates: start: 2010, end: 2010
  4. SINGULAIR [Concomitant]
     Indication: HYPERSENSITIVITY
  5. VITAMIN B1 [Concomitant]
     Indication: VITAMIN SUPPLEMENTATION
  6. CENTRUM [Concomitant]
  7. DEMEROL [Concomitant]

REACTIONS (7)
  - Nephrolithiasis [Recovered/Resolved]
  - Pancreatic cyst [Unknown]
  - Pancreatitis [Not Recovered/Not Resolved]
  - Post procedural complication [Not Recovered/Not Resolved]
  - Blood urine present [Not Recovered/Not Resolved]
  - Bladder spasm [Not Recovered/Not Resolved]
  - Pollakiuria [Not Recovered/Not Resolved]
